FAERS Safety Report 9495912 (Version 2)
Quarter: 2013Q4

REPORT INFORMATION
  Report Type: Report from Study
  Country: BR (occurrence: BR)
  Receive Date: 20130903
  Receipt Date: 20131016
  Transmission Date: 20140711
  Serious: No
  Sender: FDA-Public Use
  Company Number: BR-US-EMD SERONO, INC.-7234303

PATIENT
  Sex: Female

DRUGS (3)
  1. REBIF [Suspect]
     Indication: MULTIPLE SCLEROSIS
     Dates: start: 20030425
  2. ASPIRIN                            /00002701/ [Concomitant]
     Indication: CARDIOVASCULAR DISORDER
  3. LOSARTAN [Concomitant]
     Indication: HYPERTENSION

REACTIONS (2)
  - Urinary tract disorder [Not Recovered/Not Resolved]
  - Dry skin [Not Recovered/Not Resolved]
